FAERS Safety Report 8124730-3 (Version None)
Quarter: 2012Q1

REPORT INFORMATION
  Report Type: 
  Country: None (occurrence: None)
  Receive Date: 20120209
  Receipt Date: 20120131
  Transmission Date: 20120608
  Serious: Yes (Other)
  Sender: FDA-Public Use
  Company Number: US-JNJFOC-20120200572

PATIENT
  Age: 28 Year
  Sex: Female
  Weight: 56.7 kg

DRUGS (2)
  1. REMICADE [Suspect]
     Indication: COLITIS ULCERATIVE
     Route: 042
     Dates: start: 20120116
  2. AZULFIDINE [Concomitant]
     Route: 065

REACTIONS (3)
  - DIZZINESS [None]
  - EYE PAIN [None]
  - VISUAL ACUITY REDUCED [None]
